FAERS Safety Report 9385900 (Version 1)
Quarter: 2013Q3

REPORT INFORMATION
  Report Type: Other
  Country: AU (occurrence: AU)
  Receive Date: 20130705
  Receipt Date: 20130705
  Transmission Date: 20140515
  Serious: Yes (Death)
  Sender: FDA-Public Use
  Company Number: AU-BRISTOL-MYERS SQUIBB COMPANY-19069269

PATIENT
  Age: 54 Year
  Sex: Male

DRUGS (2)
  1. CARBOPLATIN [Suspect]
     Dosage: 1DF:AUC 5
  2. ETOPOSIDE [Suspect]
     Dosage: WITH 20% DOSE REDUCTION

REACTIONS (1)
  - Disseminated intravascular coagulation [Fatal]
